FAERS Safety Report 7916550 (Version 3)
Quarter: 2012Q4

REPORT INFORMATION
  Report Type: 
  Country: US (occurrence: US)
  Receive Date: 20110427
  Receipt Date: 20121008
  Transmission Date: 20130627
  Serious: Yes (Other)
  Sender: FDA-Public Use
  Company Number: PHHY2011US33335

PATIENT
  Age: 47 Year
  Sex: Female
  Weight: 67.57 kg

DRUGS (12)
  1. GILENYA [Suspect]
     Indication: MULTIPLE SCLEROSIS
     Dosage: 0.5 mg, daily
     Route: 048
     Dates: start: 20110405, end: 20110416
  2. GILENYA [Suspect]
     Dosage: 0.5 mg, QD
     Route: 048
     Dates: start: 201106, end: 201108
  3. ADVIL [Concomitant]
  4. AMPYRA [Concomitant]
  5. BACLOFEN [Concomitant]
  6. CLARITIN [Concomitant]
  7. FISH OIL [Concomitant]
  8. LAMICTAL [Concomitant]
  9. MULTI-VITAMINS [Concomitant]
  10. VITAMIN D [Concomitant]
  11. WELLBUTRIN [Concomitant]
  12. ZOLOFT [Concomitant]

REACTIONS (10)
  - Loss of consciousness [Not Recovered/Not Resolved]
  - Confusional state [Not Recovered/Not Resolved]
  - Abdominal pain upper [Not Recovered/Not Resolved]
  - Chest discomfort [Not Recovered/Not Resolved]
  - Vertigo [Not Recovered/Not Resolved]
  - Fatigue [Not Recovered/Not Resolved]
  - Somnolence [Not Recovered/Not Resolved]
  - Headache [Not Recovered/Not Resolved]
  - Dizziness [Not Recovered/Not Resolved]
  - Vision blurred [Unknown]
